FAERS Safety Report 18035733 (Version 1)
Quarter: 2020Q3

REPORT INFORMATION
  Report Type: Spontaneous
  Country: US (occurrence: US)
  Receive Date: 20200716
  Receipt Date: 20200716
  Transmission Date: 20201103
  Serious: Yes (Hospitalization)
  Sender: FDA-Public Use
  Company Number: None

PATIENT
  Age: 63 Year
  Sex: Male

DRUGS (1)
  1. HEPARIN [Suspect]
     Active Substance: HEPARIN SODIUM
     Indication: DEEP VEIN THROMBOSIS
     Dates: start: 20190909, end: 20190910

REACTIONS (5)
  - Oesophageal varices haemorrhage [None]
  - Epistaxis [None]
  - Haematemesis [None]
  - Melaena [None]
  - Thrombocytopenia [None]

NARRATIVE: CASE EVENT DATE: 20190911
